FAERS Safety Report 5412097-0 (Version None)
Quarter: 2007Q3

REPORT INFORMATION
  Report Type: 
  Country: None (occurrence: None)
  Receive Date: 20070813
  Receipt Date: 20070807
  Transmission Date: 20080115
  Serious: Yes (Hospitalization)
  Sender: FDA-Public Use
  Company Number: JP-AVENTIS-200712113JP

PATIENT
  Age: 6 Year
  Sex: Male
  Weight: 22 kg

DRUGS (5)
  1. CEFOTAX [Suspect]
     Route: 041
     Dates: start: 20070428, end: 20070514
  2. CARBENIN [Suspect]
     Route: 041
     Dates: start: 20070428, end: 20070514
  3. DECADRON [Concomitant]
     Route: 042
     Dates: start: 20070428, end: 20070430
  4. DECADRON [Concomitant]
     Route: 042
     Dates: start: 20070501, end: 20070501
  5. DECADRON [Concomitant]
     Route: 042
     Dates: start: 20070502, end: 20070502

REACTIONS (1)
  - ANAPHYLACTOID REACTION [None]
